FAERS Safety Report 24905227 (Version 2)
Quarter: 2025Q2

REPORT INFORMATION
  Report Type: Spontaneous
  Country: US (occurrence: US)
  Receive Date: 20250130
  Receipt Date: 20250527
  Transmission Date: 20250717
  Serious: No
  Sender: MAYNE
  Company Number: US-MAYNE PHARMA-2024MYN000477

PATIENT

DRUGS (3)
  1. RHOFADE [Suspect]
     Active Substance: OXYMETAZOLINE HYDROCHLORIDE
     Indication: Rosacea
     Dosage: 1 %, QD
     Route: 065
     Dates: end: 20241011
  2. DORYX [Suspect]
     Active Substance: DOXYCYCLINE HYCLATE
     Indication: Rosacea
     Dosage: 100 MG, BID
     Route: 065
  3. CLODERM [CLOCORTOLONE PIVALATE] [Concomitant]
     Indication: Rosacea
     Route: 065

REACTIONS (3)
  - Skin burning sensation [Recovering/Resolving]
  - Erythema [Recovering/Resolving]
  - Off label use [Unknown]

NARRATIVE: CASE EVENT DATE: 20241010
